FAERS Safety Report 6986314-X (Version None)
Quarter: 2010Q3

REPORT INFORMATION
  Report Type: 
  Country: None (occurrence: None)
  Receive Date: 20100915
  Receipt Date: 20090619
  Transmission Date: 20110219
  Serious: No
  Sender: FDA-Public Use
  Company Number: US-WYE-H09864309

PATIENT
  Age: 40 Year
  Sex: Female
  Weight: 60.84 kg

DRUGS (3)
  1. PRISTIQ [Suspect]
     Indication: PREMENSTRUAL SYNDROME
     Route: 048
     Dates: start: 20090512, end: 20090526
  2. YAZ [Suspect]
     Dosage: UNKNOWN
     Route: 065
     Dates: start: 20090527
  3. INSULIN [Concomitant]

REACTIONS (5)
  - ANGER [None]
  - CRYING [None]
  - DRUG WITHDRAWAL SYNDROME [None]
  - MENORRHAGIA [None]
  - UNEVALUABLE EVENT [None]
